FAERS Safety Report 25117589 (Version 1)
Quarter: 2025Q1

REPORT INFORMATION
  Report Type: Spontaneous
  Country: HR (occurrence: HR)
  Receive Date: 20250325
  Receipt Date: 20250325
  Transmission Date: 20250408
  Serious: Yes (Hospitalization, Other)
  Sender: RANBAXY
  Company Number: HR-SUN PHARMACEUTICAL INDUSTRIES LTD-2025R1-500034

PATIENT
  Age: 50 Year
  Sex: Male

DRUGS (3)
  1. PAZOPANIB [Suspect]
     Active Substance: PAZOPANIB
     Indication: Clear cell renal cell carcinoma
     Dosage: 800 MILLIGRAM, DAILY
     Route: 048
  2. PAZOPANIB [Suspect]
     Active Substance: PAZOPANIB
     Dosage: 400 MILLIGRAM, DAILY
     Route: 048
  3. OMEGA-3 FATTY ACIDS [Suspect]
     Active Substance: OMEGA-3 FATTY ACIDS
     Indication: Enteral nutrition
     Dosage: 2.2 GRAM, DAILY
     Route: 048

REACTIONS (6)
  - Stomatitis [Recovered/Resolved]
  - Anaemia [Recovered/Resolved]
  - Haematochezia [Recovered/Resolved]
  - Hypertension [Recovered/Resolved]
  - Disease progression [Unknown]
  - Metastases to central nervous system [Unknown]
